FAERS Safety Report 4469156-9 (Version None)
Quarter: 2004Q4

REPORT INFORMATION
  Report Type: 
  Country: None (occurrence: None)
  Receive Date: 20041005
  Receipt Date: 20040927
  Transmission Date: 20050328
  Serious: Yes (Other)
  Sender: FDA-Public Use
  Company Number: 2004235826US

PATIENT
  Sex: Male
  Weight: 112.5 kg

DRUGS (1)
  1. CELEBREX [Suspect]
     Indication: BACK PAIN
     Dosage: 200 MG, ORAL
     Route: 048

REACTIONS (4)
  - CONCUSSION [None]
  - DYSSTASIA [None]
  - HAEMATEMESIS [None]
  - RECTAL HAEMORRHAGE [None]
